FAERS Safety Report 15007787 (Version 1)
Quarter: 2018Q2

REPORT INFORMATION
  Report Type: Spontaneous
  Country: PL (occurrence: PL)
  Receive Date: 20180613
  Receipt Date: 20180613
  Transmission Date: 20180711
  Serious: Yes (Other)
  Sender: FDA-Public Use
  Company Number: PL-TAKEDA-2018TEU003809

PATIENT
  Age: 40 Year
  Sex: Female

DRUGS (4)
  1. METRONIDAZOL                       /00012501/ [Concomitant]
     Active Substance: METRONIDAZOLE
     Indication: HELICOBACTER INFECTION
     Dosage: UNK UNK, BID
     Route: 048
  2. AMOTAKS [Concomitant]
     Indication: HELICOBACTER INFECTION
     Dosage: 1 G, Q12H
     Route: 048
  3. DEXILANT [Suspect]
     Active Substance: DEXLANSOPRAZOLE
     Indication: HIATUS HERNIA
     Dosage: 60 MG, BID
     Route: 048
     Dates: start: 20171227, end: 20180110
  4. DEXILANT [Suspect]
     Active Substance: DEXLANSOPRAZOLE
     Indication: HELICOBACTER INFECTION
     Dosage: 30 MG, BID
     Route: 048

REACTIONS (11)
  - Confusional state [Unknown]
  - Asthenia [Unknown]
  - Dyspnoea [Unknown]
  - Throat tightness [Unknown]
  - Malaise [Unknown]
  - Hot flush [Unknown]
  - Pallor [Unknown]
  - Somnolence [Unknown]
  - Dizziness [Unknown]
  - Chest pain [Unknown]
  - Chest discomfort [Unknown]
